FAERS Safety Report 8825182 (Version 1)
Quarter: 2012Q4

REPORT INFORMATION
  Report Type: 
  Country: FR (occurrence: FR)
  Receive Date: 20121004
  Receipt Date: 20121004
  Transmission Date: 20130627
  Serious: Yes (Hospitalization)
  Sender: FDA-Public Use
  Company Number: FR-GLAXOSMITHKLINE-B0833096A

PATIENT
  Sex: Female

DRUGS (5)
  1. LAMICTAL [Suspect]
     Indication: EPILEPSY
     Route: 048
     Dates: start: 201102
  2. TERCIAN [Suspect]
     Indication: PRODUCT USED FOR UNKNOWN INDICATION
     Dosage: 12.5MG Three times per day
     Route: 048
     Dates: end: 201208
  3. SELOKEN [Concomitant]
     Dosage: 50MG Per day
     Route: 065
  4. PRAVASTATINE [Concomitant]
     Dosage: 1UNIT Per day
     Route: 065
  5. MIRTAZAPINE [Concomitant]
     Dosage: 2UNIT Per day
     Route: 065

REACTIONS (4)
  - Abnormal behaviour [Recovering/Resolving]
  - Screaming [Recovering/Resolving]
  - Aggression [Recovering/Resolving]
  - Food aversion [Recovering/Resolving]
